FAERS Safety Report 6031668-4 (Version None)
Quarter: 2008Q4

REPORT INFORMATION
  Report Type: 
  Country: None (occurrence: None)
  Receive Date: 20081224
  Receipt Date: 20080616
  Transmission Date: 20090506
  Serious: Yes (Life-Threatening, Hospitalization, Other)
  Sender: FDA-Public Use
  Company Number: FEI2008-1140

PATIENT
  Age: 27 Year
  Sex: Female
  Weight: 79.3795 kg

DRUGS (1)
  1. PARAGARD T 380A [Suspect]
     Indication: CONTRACEPTION
     Dosage: INTRA-UTERINE
     Route: 015
     Dates: start: 20060504, end: 20080415

REACTIONS (3)
  - DYSFUNCTIONAL UTERINE BLEEDING [None]
  - ECTOPIC PREGNANCY [None]
  - PELVIC PAIN [None]
